FAERS Safety Report 5208067-8 (Version None)
Quarter: 2007Q1

REPORT INFORMATION
  Report Type: 
  Country: None (occurrence: None)
  Receive Date: 20070115
  Receipt Date: 20070108
  Transmission Date: 20070707
  Serious: Yes (Hospitalization)
  Sender: FDA-Public Use
  Company Number: IT-ROCHE-473820

PATIENT
  Age: 63 Year
  Sex: Female

DRUGS (3)
  1. XELODA [Suspect]
     Route: 048
     Dates: start: 20050825, end: 20061109
  2. ZOMETA [Concomitant]
     Route: 042
     Dates: start: 20061006, end: 20061007
  3. BENADON [Concomitant]
     Route: 048
     Dates: start: 20061007, end: 20061113

REACTIONS (3)
  - DEHYDRATION [None]
  - DIARRHOEA [None]
  - ILEUS PARALYTIC [None]
